FAERS Safety Report 4766588-6 (Version None)
Quarter: 2005Q3

REPORT INFORMATION
  Report Type: 
  Country: None (occurrence: None)
  Receive Date: 20050908
  Receipt Date: 20050824
  Transmission Date: 20060218
  Serious: Yes (Hospitalization)
  Sender: FDA-Public Use
  Company Number: 2005-DE-03395GD

PATIENT
  Age: 8 Year
  Sex: Male

DRUGS (2)
  1. HYDROCHLOROTHIAZIDE [Suspect]
     Indication: HYPERTENSION
     Dosage: 50 MG
  2. PROPRANOLOL [Suspect]
     Indication: HYPERTENSION
     Dosage: 100 MG TWICE PER DAY

REACTIONS (3)
  - BLOOD PRESSURE INCREASED [None]
  - CARDIAC MURMUR [None]
  - DRUG EFFECT DECREASED [None]
